FAERS Safety Report 5274030-4 (Version None)
Quarter: 2007Q1

REPORT INFORMATION
  Report Type: 
  Country: None (occurrence: None)
  Receive Date: 20070323
  Receipt Date: 20070319
  Transmission Date: 20070707
  Serious: Yes (Death, Other)
  Sender: FDA-Public Use
  Company Number: US-ELI_LILLY_AND_COMPANY-US200703003912

PATIENT
  Age: 68 Year
  Sex: Male

DRUGS (3)
  1. GEMZAR [Suspect]
     Dosage: 800 MG, UNK
     Route: 042
  2. CISPLATIN [Concomitant]
     Dosage: 40 MG, OTHER
  3. AVASTIN [Concomitant]
     Dosage: 15 MG, OTHER

REACTIONS (3)
  - DEATH [None]
  - ENCEPHALOPATHY [None]
  - HYPERTENSIVE CRISIS [None]
